FAERS Safety Report 5707048-5 (Version None)
Quarter: 2008Q2

REPORT INFORMATION
  Report Type: 
  Country: None (occurrence: None)
  Receive Date: 20080416
  Receipt Date: 20080411
  Transmission Date: 20081010
  Serious: Yes (Hospitalization)
  Sender: FDA-Public Use
  Company Number: B0511998A

PATIENT
  Age: 34 Year
  Sex: Male

DRUGS (5)
  1. AUGMENTIN [Suspect]
     Indication: PROPHYLAXIS
     Route: 065
     Dates: start: 20080123, end: 20080123
  2. QUERCUS CORTEX [Suspect]
     Indication: PRURITUS
     Dosage: 10ML PER DAY
     Route: 040
     Dates: start: 20080225, end: 20080227
  3. UNKNOWN [Concomitant]
     Dosage: 30MG THREE TIMES PER DAY
     Route: 048
     Dates: start: 20080222, end: 20080226
  4. HEPATODORON [Concomitant]
     Indication: LIVER DISORDER
     Dosage: 200MG NINE TIMES PER DAY
     Route: 048
     Dates: start: 20080222, end: 20080227
  5. CICHORIUM [Concomitant]
     Dosage: 10DROP THREE TIMES PER DAY
     Route: 048
     Dates: start: 20080223, end: 20080226

REACTIONS (8)
  - ALANINE AMINOTRANSFERASE INCREASED [None]
  - ASPARTATE AMINOTRANSFERASE INCREASED [None]
  - BLOOD BILIRUBIN INCREASED [None]
  - BLOOD CREATININE INCREASED [None]
  - BLOOD PHOSPHORUS INCREASED [None]
  - BLOOD UREA INCREASED [None]
  - CHOLESTASIS [None]
  - RENAL FAILURE ACUTE [None]
